FAERS Safety Report 9728141 (Version 1)
Quarter: 2013Q4

REPORT INFORMATION
  Report Type: Spontaneous
  Country: SZ (occurrence: None)
  Receive Date: 20131202
  Receipt Date: 20131202
  Transmission Date: 20140711
  Serious: Yes (Life-Threatening)
  Sender: FDA-Public Use
  Company Number: 20130671

PATIENT
  Age: 69 Year
  Sex: Female
  Weight: 77 kg

DRUGS (1)
  1. FERINJECT [Suspect]
     Indication: ANAEMIA
     Dosage: 1000 MG IN THE MORNING INTRAVENOUS DRIP
     Route: 041
     Dates: start: 20130903, end: 20130903

REACTIONS (4)
  - Sepsis [None]
  - Hypotension [None]
  - Pyrexia [None]
  - Tachycardia [None]
